FAERS Safety Report 7289463-4 (Version None)
Quarter: 2011Q1

REPORT INFORMATION
  Report Type: 
  Country: None (occurrence: None)
  Receive Date: 20110211
  Receipt Date: 20110203
  Transmission Date: 20110831
  Serious: Yes (Other)
  Sender: FDA-Public Use
  Company Number: US-RB-019019-10

PATIENT
  Sex: Female

DRUGS (1)
  1. SUBOXONE [Suspect]
     Indication: PRODUCT USED FOR UNKNOWN INDICATION
     Dosage: UNKNOWN DSOING DETAILS
     Route: 065
     Dates: start: 20100101

REACTIONS (3)
  - GLOSSODYNIA [None]
  - NEOPLASM MALIGNANT [None]
  - STOMATITIS [None]
